FAERS Safety Report 20230705 (Version 1)
Quarter: 2021Q4

REPORT INFORMATION
  Report Type: Spontaneous
  Country: CN (occurrence: CN)
  Receive Date: 20211227
  Receipt Date: 20211227
  Transmission Date: 20220303
  Serious: Yes (Life-Threatening, Other)
  Sender: FDA-Public Use
  Company Number: CN-009507513-2112CHN007141

PATIENT
  Age: 83 Year
  Sex: Male
  Weight: 70 kg

DRUGS (2)
  1. CILASTATIN SODIUM\IMIPENEM [Suspect]
     Active Substance: CILASTATIN SODIUM\IMIPENEM
     Indication: Anti-infective therapy
     Dosage: 0.5 G, Q8H
     Route: 041
     Dates: start: 20211119, end: 20211123
  2. SODIUM CHLORIDE [Concomitant]
     Active Substance: SODIUM CHLORIDE
     Indication: Medication dilution
     Dosage: 100 ML, Q8H
     Route: 041
     Dates: start: 20211119, end: 20211123

REACTIONS (6)
  - Loss of consciousness [Recovering/Resolving]
  - Trismus [Recovering/Resolving]
  - Cyanosis [Recovering/Resolving]
  - Blood pressure abnormal [Unknown]
  - Muscle spasms [Unknown]
  - Staring [Unknown]

NARRATIVE: CASE EVENT DATE: 20211122
